FAERS Safety Report 7512633-4 (Version None)
Quarter: 2011Q2

REPORT INFORMATION
  Report Type: 
  Country: None (occurrence: None)
  Receive Date: 20110520
  Receipt Date: 20110513
  Transmission Date: 20111010
  Serious: Yes (Hospitalization, Other)
  Sender: FDA-Public Use
  Company Number: 2010SP031284

PATIENT
  Age: 32 Year
  Sex: Female
  Weight: 79.3795 kg

DRUGS (1)
  1. NUVARING [Suspect]
     Indication: CONTRACEPTION
     Dosage: VAG
     Route: 067
     Dates: start: 20080528, end: 20080601

REACTIONS (25)
  - PULMONARY CONGESTION [None]
  - PULMONARY INFARCTION [None]
  - HYPERTENSION [None]
  - PULMONARY EMBOLISM [None]
  - DELIRIUM [None]
  - PARAESTHESIA [None]
  - TRANSIENT ISCHAEMIC ATTACK [None]
  - HYPERLIPIDAEMIA [None]
  - CONVULSION [None]
  - PROTEIN C DEFICIENCY [None]
  - RESPIRATORY FAILURE [None]
  - ANAEMIA [None]
  - HAEMOPTYSIS [None]
  - RAYNAUD'S PHENOMENON [None]
  - SNORING [None]
  - ATELECTASIS [None]
  - MUSCLE SPASMS [None]
  - CEREBROVASCULAR ACCIDENT [None]
  - GASTROOESOPHAGEAL REFLUX DISEASE [None]
  - FATIGUE [None]
  - POST-TRAUMATIC STRESS DISORDER [None]
  - SINUS TACHYCARDIA [None]
  - EXERCISE TOLERANCE DECREASED [None]
  - CYANOSIS [None]
  - PROTEIN S DEFICIENCY [None]
